FAERS Safety Report 15264008 (Version 1)
Quarter: 2018Q3

REPORT INFORMATION
  Report Type: Spontaneous
  Country: US (occurrence: US)
  Receive Date: 20180810
  Receipt Date: 20180810
  Transmission Date: 20181010
  Serious: Yes (Hospitalization)
  Sender: FDA-Public Use
  Company Number: US-STRIDES ARCOLAB LIMITED-2017SP013178

PATIENT

DRUGS (1)
  1. TACROLIMUS. [Suspect]
     Active Substance: TACROLIMUS
     Indication: STEM CELL TRANSPLANT
     Dosage: UNK
     Route: 065

REACTIONS (2)
  - Enterococcal infection [Recovered/Resolved]
  - Off label use [Unknown]
